FAERS Safety Report 8792066 (Version 1)
Quarter: 2012Q4

REPORT INFORMATION
  Report Type: 
  Country: US (occurrence: US)
  Receive Date: 20120918
  Receipt Date: 20120918
  Transmission Date: 20130627
  Serious: No
  Sender: FDA-Public Use
  Company Number: US-BAYER-2012-096565

PATIENT
  Age: 54 Year
  Sex: Female

DRUGS (7)
  1. ALEVE CAPLET/TABLET,MIDOL EXTENDED RELIEF CAPLET [Suspect]
  2. ZOLOFT [Concomitant]
     Dosage: 1 DF, QD
     Route: 048
  3. BENICAR HCT [Concomitant]
     Dosage: 1 DF, QD
     Route: 048
  4. SINGULAIR [Concomitant]
     Dosage: 1 DF, QD
     Route: 048
  5. NEXIUM [Concomitant]
     Dosage: 1 DF, QD
     Route: 048
  6. FUROSEMIDE [Concomitant]
     Dosage: 1 DF, QD
     Route: 048
  7. ASPIRIN [Concomitant]
     Dosage: UNK

REACTIONS (1)
  - Dizziness [None]
